FAERS Safety Report 13735978 (Version 1)
Quarter: 2017Q3

REPORT INFORMATION
  Report Type: Spontaneous
  Country: US (occurrence: US)
  Receive Date: 20170707
  Receipt Date: 20170707
  Transmission Date: 20171127
  Serious: No
  Sender: FDA-Public Use
  Company Number: None

PATIENT
  Age: 66 Year

DRUGS (1)
  1. ZYTIGA [Suspect]
     Active Substance: ABIRATERONE ACETATE
     Indication: VULVAL CANCER
     Route: 048
     Dates: start: 20161104

REACTIONS (5)
  - Kidney infection [None]
  - Urinary tract infection [None]
  - Sepsis [None]
  - Renal disorder [None]
  - Cystitis [None]
